FAERS Safety Report 21244813 (Version 3)
Quarter: 2022Q4

REPORT INFORMATION
  Report Type: Report from Study
  Country: US (occurrence: US)
  Receive Date: 20220823
  Receipt Date: 20221103
  Transmission Date: 20230113
  Serious: No
  Sender: FDA-Public Use
  Company Number: US-NOVARTISTESTPH-NVSC2022US188547

PATIENT
  Sex: Male

DRUGS (1)
  1. ENTRESTO [Suspect]
     Active Substance: SACUBITRIL\VALSARTAN
     Indication: Product used for unknown indication
     Dosage: 1 DOSAGE FORM, BID
     Route: 048
     Dates: start: 20210818

REACTIONS (7)
  - Hordeolum [Unknown]
  - Dyspnoea [Unknown]
  - SARS-CoV-2 test positive [Unknown]
  - Heart rate irregular [Recovering/Resolving]
  - Feeling abnormal [Recovering/Resolving]
  - Fatigue [Unknown]
  - Cough [Unknown]
